FAERS Safety Report 9926048 (Version 2)
Quarter: 2014Q2

REPORT INFORMATION
  Report Type: Spontaneous
  Country: US (occurrence: US)
  Receive Date: 20140226
  Receipt Date: 20140416
  Transmission Date: 20141212
  Serious: Yes (Death)
  Sender: FDA-Public Use
  Company Number: US-FRI-1000054477

PATIENT
  Age: 48 Year
  Sex: Female

DRUGS (17)
  1. SAVELLA [Suspect]
     Indication: PAIN
     Dosage: 12.5 MG
     Route: 048
     Dates: start: 20120817, end: 20120817
  2. SAVELLA [Suspect]
     Indication: FATIGUE
     Dosage: 25 MG
     Route: 048
     Dates: start: 20120818, end: 20120819
  3. SAVELLA [Suspect]
     Indication: MYALGIA
     Dosage: 50 MG
     Route: 048
     Dates: start: 20120820, end: 20120823
  4. SAVELLA [Suspect]
     Indication: MYOSITIS
     Dosage: 100 MG
     Route: 048
     Dates: start: 20120824, end: 20131007
  5. SAVELLA [Suspect]
     Indication: NEURALGIA
  6. ACETAMINOPHEN [Concomitant]
     Dosage: 2000 MG
     Route: 048
  7. CLARITIN [Concomitant]
     Dosage: 10 MG
     Route: 048
  8. CPAP [Concomitant]
     Dosage: 10 CM H2O NIGHTLY
  9. CYMBALTA [Concomitant]
     Dosage: 60 MG
     Route: 048
  10. LAMOTRIGINE [Concomitant]
     Dosage: 200 MG
     Route: 048
  11. LYRICA [Concomitant]
     Dosage: 200 MG
     Route: 048
  12. MAGNESIUM GLUCONATE [Concomitant]
     Dosage: 500 MG
     Route: 048
  13. MAXALT [Concomitant]
     Indication: HEADACHE
     Dosage: 10 MG EVERY 2 HOURS PRN
     Route: 048
  14. ONDANSETRON [Concomitant]
     Indication: NAUSEA
     Dosage: 4 MG EVERY 6 HOURS PRN
     Route: 048
  15. TOPIRAMATE [Concomitant]
     Dosage: 100 MG
     Route: 048
  16. TOPIRAMATE [Concomitant]
     Dosage: 25 MG (IN ADDITION TO THE 100 MG)
     Route: 048
  17. VIT D3 [Concomitant]
     Dosage: 4000 IU
     Route: 048

REACTIONS (2)
  - Pulmonary embolism [Fatal]
  - Off label use [Recovered/Resolved]
